FAERS Safety Report 14152900 (Version 3)
Quarter: 2022Q1

REPORT INFORMATION
  Report Type: Report from Study
  Country: FR (occurrence: FR)
  Receive Date: 20171102
  Receipt Date: 20220225
  Transmission Date: 20220424
  Serious: Yes (Death, Life-Threatening, Other)
  Sender: FDA-Public Use
  Company Number: FR-JNJFOC-20171034231

PATIENT
  Age: 61 Year
  Sex: Male
  Weight: 98 kg

DRUGS (15)
  1. REMICADE [Suspect]
     Active Substance: INFLIXIMAB
     Indication: Psoriasis
     Route: 042
     Dates: start: 20151027
  2. REMICADE [Suspect]
     Active Substance: INFLIXIMAB
     Dosage: ONE DF EVERY 2 WEEKS
     Route: 042
     Dates: start: 20160512, end: 20170519
  3. STELARA [Suspect]
     Active Substance: USTEKINUMAB
     Indication: Psoriasis
     Dosage: I DF EVERY 4 WEEKS
     Route: 058
     Dates: start: 20170519
  4. STELARA [Suspect]
     Active Substance: USTEKINUMAB
     Route: 058
     Dates: start: 20170620
  5. METHOTREXATE [Suspect]
     Active Substance: METHOTREXATE
     Indication: Product used for unknown indication
     Route: 058
     Dates: start: 20150309
  6. COSENTYX [Suspect]
     Active Substance: SECUKINUMAB
     Indication: Product used for unknown indication
     Route: 058
     Dates: start: 20171124
  7. FOLIC ACID [Suspect]
     Active Substance: FOLIC ACID
     Indication: Product used for unknown indication
     Route: 048
     Dates: start: 20150309
  8. CLOBETASOL PROPIONATE [Concomitant]
     Active Substance: CLOBETASOL PROPIONATE
     Route: 065
     Dates: start: 201503
  9. ESOMEPRAZOLE [Concomitant]
     Active Substance: ESOMEPRAZOLE
     Route: 065
     Dates: start: 201510
  10. CELECOXIB [Concomitant]
     Active Substance: CELECOXIB
     Route: 065
  11. ESOMEPRAZOLE MAGNESIUM [Concomitant]
     Active Substance: ESOMEPRAZOLE MAGNESIUM
     Dates: start: 20170825
  12. CELEBREX [Concomitant]
     Active Substance: CELECOXIB
     Dates: start: 20170519
  13. BETAMETHASONE [Concomitant]
     Active Substance: BETAMETHASONE
     Dates: start: 20160512
  14. CLOBETASOL PROPIONATE [Concomitant]
     Active Substance: CLOBETASOL PROPIONATE
     Dates: start: 20150727
  15. GLYCERIN\MINERAL OIL\PETROLATUM [Concomitant]
     Active Substance: GLYCERIN\MINERAL OIL\PETROLATUM
     Dates: start: 20150513

REACTIONS (7)
  - Sudden death [Fatal]
  - Tooth abscess [Fatal]
  - Overdose [Fatal]
  - Off label use [Fatal]
  - Product use issue [Fatal]
  - Product use issue [Fatal]
  - Inappropriate schedule of product administration [Fatal]

NARRATIVE: CASE EVENT DATE: 20150309
